FAERS Safety Report 8601691-1 (Version None)
Quarter: 2012Q3

REPORT INFORMATION
  Report Type: 
  Country: None (occurrence: None)
  Receive Date: 20120817
  Receipt Date: 20120201
  Transmission Date: 20120928
  Serious: Yes (Hospitalization)
  Sender: FDA-Public Use
  Company Number: US-BRISTOL-MYERS SQUIBB COMPANY-16357758

PATIENT
  Age: 64 Year
  Sex: Male

DRUGS (8)
  1. CADUET [Concomitant]
  2. GLYBURIDE [Concomitant]
  3. POTASSIUM CHLORIDE [Concomitant]
  4. BISOPROLOL FUMARATE [Concomitant]
  5. BUMEX [Concomitant]
  6. GLEEVEC [Concomitant]
  7. SPRYCEL [Suspect]
     Indication: CHRONIC MYELOID LEUKAEMIA
     Dosage: APPROX 2 WEEKS
     Route: 048
     Dates: start: 20111019, end: 20111028
  8. ZETIA [Concomitant]

REACTIONS (5)
  - PLEURAL EFFUSION [None]
  - PULMONARY OEDEMA [None]
  - DIARRHOEA [None]
  - HEADACHE [None]
  - FLUID RETENTION [None]
